FAERS Safety Report 24629324 (Version 2)
Quarter: 2024Q4

REPORT INFORMATION
  Report Type: Spontaneous
  Country: US (occurrence: US)
  Receive Date: 20241118
  Receipt Date: 20241129
  Transmission Date: 20250115
  Serious: No
  Sender: ROCHE
  Company Number: US-ROCHE-10000129361

PATIENT

DRUGS (2)
  1. XOLAIR PFS [Suspect]
     Active Substance: OMALIZUMAB
     Indication: Product used for unknown indication
     Route: 058
  2. XOLAIR PFS [Suspect]
     Active Substance: OMALIZUMAB

REACTIONS (4)
  - Accidental underdose [Unknown]
  - Device use error [Unknown]
  - Off label use [Unknown]
  - No adverse event [Unknown]
